FAERS Safety Report 7030101-3 (Version None)
Quarter: 2010Q4

REPORT INFORMATION
  Report Type: 
  Country: None (occurrence: None)
  Receive Date: 20101006
  Receipt Date: 20100930
  Transmission Date: 20110411
  Serious: Yes (Other)
  Sender: FDA-Public Use
  Company Number: ES-PFIZER INC-2010124092

PATIENT
  Age: 34 Year
  Sex: Female

DRUGS (6)
  1. ZYVOX [Suspect]
     Indication: RESPIRATORY TRACT INFECTION
     Dosage: 0.6 G, 2X/DAY
     Route: 042
     Dates: start: 20100719, end: 20100726
  2. ACYCLOVIR [Suspect]
     Indication: BONE MARROW TRANSPLANT
     Dosage: 1.5 GRAMS DAILY
     Dates: start: 20100713, end: 20100803
  3. CYCLOSPORINE [Suspect]
     Indication: BONE MARROW TRANSPLANT
     Dosage: UNK
     Dates: start: 20100713
  4. AMIKACIN [Suspect]
     Indication: NEUTROPENIA
     Dosage: 1 GRAM DAILY
     Route: 042
     Dates: start: 20100713, end: 20100729
  5. CANCIDAS [Suspect]
     Indication: NEUTROPENIA
     Dosage: UNK
     Dates: start: 20100713, end: 20100805
  6. MEROPENEM [Suspect]
     Indication: RESPIRATORY TRACT INFECTION
     Dosage: 3 GRAMS DAILY
     Route: 042
     Dates: start: 20100719, end: 20100731

REACTIONS (2)
  - HEPATITIS [None]
  - HYPERBILIRUBINAEMIA [None]
